FAERS Safety Report 9664599 (Version 4)
Quarter: 2013Q4

REPORT INFORMATION
  Report Type: Spontaneous
  Country: JP (occurrence: JP)
  Receive Date: 20131101
  Receipt Date: 20131213
  Transmission Date: 20140711
  Serious: Yes (Hospitalization, Disabling, Other)
  Sender: FDA-Public Use
  Company Number: JP-BRISTOL-MYERS SQUIBB COMPANY-19697002

PATIENT
  Age: 63 Year
  Sex: Male
  Weight: 114 kg

DRUGS (15)
  1. BYETTA PEN DISPOSABLE [Suspect]
     Indication: TYPE 2 DIABETES MELLITUS
     Route: 058
     Dates: start: 20130904, end: 20130905
  2. JANUVIA [Concomitant]
     Indication: TYPE 2 DIABETES MELLITUS
     Dosage: INTER:04-SEP-2013
     Route: 048
  3. AMARYL [Concomitant]
     Indication: TYPE 2 DIABETES MELLITUS
     Dosage: INTER: 04-SEP-13
     Route: 058
     Dates: start: 20030625, end: 20130904
  4. ACTOS [Concomitant]
     Indication: TYPE 2 DIABETES MELLITUS
     Dosage: TAB
     Route: 048
     Dates: start: 20060208
  5. SEIBULE [Concomitant]
     Indication: TYPE 2 DIABETES MELLITUS
     Dosage: INTER: 04SEP13
     Route: 058
     Dates: start: 20091218, end: 20130904
  6. TAKEPRON [Concomitant]
     Indication: CORONARY ANGIOPLASTY
     Route: 048
     Dates: start: 20070411
  7. METGLUCO [Concomitant]
     Indication: TYPE 2 DIABETES MELLITUS
     Dosage: TAB
     Route: 048
     Dates: start: 20050706
  8. LIPITOR [Concomitant]
     Indication: CORONARY ANGIOPLASTY
     Route: 048
     Dates: start: 20070502
  9. BAYASPIRIN [Concomitant]
     Indication: CORONARY ANGIOPLASTY
     Dosage: TAB
     Route: 048
     Dates: start: 20070411
  10. PANALDINE [Concomitant]
     Indication: CORONARY ANGIOPLASTY
     Dosage: TAB
     Route: 048
     Dates: start: 20070502
  11. BIOFERMIN [Concomitant]
     Indication: CORONARY ARTERY BYPASS
     Dosage: TAB
     Route: 048
     Dates: start: 20120312
  12. VASOLAN [Concomitant]
     Indication: CORONARY ANGIOPLASTY
     Route: 048
     Dates: start: 20121005, end: 20130905
  13. ARTIST [Concomitant]
     Indication: HYPERTENSION
     Route: 048
     Dates: start: 20121014, end: 20130905
  14. DIOVAN [Concomitant]
     Indication: HYPERTENSION
     Dosage: TAB
     Route: 048
     Dates: start: 20110709, end: 20130905
  15. SITAGLIPTIN PHOSPHATE [Concomitant]
     Indication: TYPE 2 DIABETES MELLITUS
     Dates: start: 20110815, end: 20130904

REACTIONS (6)
  - Nausea [Recovered/Resolved]
  - Vomiting [Recovered/Resolved]
  - Blood pressure decreased [Recovered/Resolved]
  - Dehydration [Recovered/Resolved]
  - Renal impairment [Recovered/Resolved]
  - Cold sweat [Unknown]
